FAERS Safety Report 13717792 (Version 1)
Quarter: 2017Q3

REPORT INFORMATION
  Report Type: Spontaneous
  Country: AU (occurrence: AU)
  Receive Date: 20170705
  Receipt Date: 20170705
  Transmission Date: 20171127
  Serious: Yes (Death, Other)
  Sender: FDA-Public Use
  Company Number: AU-BRISTOL-MYERS SQUIBB COMPANY-BMS-2017-059939

PATIENT
  Age: 68 Year
  Weight: 54 kg

DRUGS (1)
  1. OPDIVO [Suspect]
     Active Substance: NIVOLUMAB
     Indication: HEAD AND NECK CANCER
     Dosage: 162 MG, UNK
     Route: 065
     Dates: start: 20170509

REACTIONS (1)
  - Death [Fatal]

NARRATIVE: CASE EVENT DATE: 20170627
